FAERS Safety Report 21796991 (Version 2)
Quarter: 2023Q2

REPORT INFORMATION
  Report Type: Spontaneous
  Country: SE (occurrence: SE)
  Receive Date: 20221230
  Receipt Date: 20230630
  Transmission Date: 20230721
  Serious: Yes (Hospitalization, Other)
  Sender: FDA-Public Use
  Company Number: SE-MPA-2022-022165

PATIENT
  Age: 22 Year
  Sex: Male

DRUGS (6)
  1. OLANZAPINE [Suspect]
     Active Substance: OLANZAPINE
     Indication: Product used for unknown indication
     Dosage: 80 MILLIGRAM, TOTAL 1
     Route: 048
     Dates: start: 20210427, end: 20210427
  2. PROPIOMAZINE [Suspect]
     Active Substance: PROPIOMAZINE
     Indication: Product used for unknown indication
     Dosage: 100 MILLIGRAM, TOTAL 1
     Route: 048
     Dates: start: 20210427, end: 20210427
  3. MIRTAZAPINE [Suspect]
     Active Substance: MIRTAZAPINE
     Indication: Product used for unknown indication
     Dosage: 60 MILLIGRAM, TOTAL 1
     Route: 048
     Dates: start: 20210427, end: 20210427
  4. LISDEXAMFETAMINE DIMESYLATE [Suspect]
     Active Substance: LISDEXAMFETAMINE DIMESYLATE
     Indication: Product used for unknown indication
     Dosage: 400 MILLIGRAM, TOTAL 1
     Route: 048
     Dates: start: 20210427, end: 20210427
  5. MELATONIN [Suspect]
     Active Substance: MELATONIN
     Indication: Product used for unknown indication
     Dosage: 40 MILLIGRAM, TOTAL 1
     Route: 048
     Dates: start: 20210427, end: 20210427
  6. TRIMEPRAZINE [Suspect]
     Active Substance: TRIMEPRAZINE
     Indication: Product used for unknown indication
     Dosage: 160 MILLIGRAM, TOTAL 1
     Route: 048
     Dates: start: 20210427, end: 20210427

REACTIONS (2)
  - Intentional overdose [Unknown]
  - Intentional self-injury [Unknown]

NARRATIVE: CASE EVENT DATE: 20210427
